FAERS Safety Report 9660701 (Version 2)
Quarter: 2013Q4

REPORT INFORMATION
  Report Type: Spontaneous
  Country: IT (occurrence: IT)
  Receive Date: 20131031
  Receipt Date: 20131115
  Transmission Date: 20140711
  Serious: Yes (Hospitalization)
  Sender: FDA-Public Use
  Company Number: IT-BAXTER-2013BAX041721

PATIENT
  Age: 74 Year
  Sex: Male
  Weight: 97 kg

DRUGS (18)
  1. ENDOXAN BAXTER [Suspect]
     Indication: B-CELL LYMPHOMA
     Route: 040
     Dates: start: 20130416, end: 20130528
  2. ENDOXAN BAXTER [Suspect]
     Route: 040
     Dates: start: 20130725
  3. MABTHERA [Suspect]
     Indication: B-CELL LYMPHOMA
     Route: 042
     Dates: start: 20130415, end: 20130528
  4. MABTHERA [Suspect]
     Route: 042
     Dates: start: 20130725
  5. VINCRISTINA [Suspect]
     Indication: B-CELL LYMPHOMA
     Route: 040
     Dates: start: 20130416, end: 20130528
  6. VINCRISTINA [Suspect]
     Route: 040
     Dates: start: 20130725
  7. DELTACORTENE [Suspect]
     Indication: B-CELL LYMPHOMA
     Route: 048
     Dates: start: 20130417, end: 20130601
  8. DELTACORTENE [Suspect]
     Route: 048
     Dates: start: 20130725
  9. ADRIBLASTINA [Suspect]
     Indication: B-CELL LYMPHOMA
     Route: 040
     Dates: start: 20130416, end: 20130528
  10. PEGFILGRASTIM [Concomitant]
     Indication: FEBRILE NEUTROPENIA
     Route: 058
     Dates: start: 20130416, end: 20130528
  11. ALLOPURINOL [Concomitant]
     Indication: HYPERURICAEMIA
     Route: 048
     Dates: start: 20130327, end: 20130826
  12. CLEXANE [Concomitant]
     Indication: THROMBOSIS PROPHYLAXIS
     Route: 058
     Dates: start: 20130508, end: 20130628
  13. ACICLIN [Concomitant]
     Indication: ANTIVIRAL PROPHYLAXIS
     Route: 048
     Dates: start: 20130528, end: 20130826
  14. PANTORC [Concomitant]
     Indication: GASTROOESOPHAGEAL REFLUX DISEASE
     Route: 048
     Dates: start: 20130327, end: 20130826
  15. NORVASC [Concomitant]
     Indication: HYPERTENSION
     Route: 048
     Dates: start: 20130327, end: 20130826
  16. TENORMIN [Concomitant]
     Indication: HYPERTENSION
     Route: 048
     Dates: start: 20130327, end: 20130826
  17. LASIX [Concomitant]
     Indication: PRODUCT USED FOR UNKNOWN INDICATION
     Route: 048
     Dates: start: 20130327, end: 20130628
  18. GLIBOMET [Concomitant]
     Indication: TYPE 2 DIABETES MELLITUS
     Dosage: 400MG +5 MG, 1 POSOLOGY DOSE
     Route: 048
     Dates: start: 20130327, end: 20130628

REACTIONS (2)
  - Pneumonia [Recovered/Resolved]
  - Febrile neutropenia [Recovered/Resolved]
